FAERS Safety Report 7246495-X (Version None)
Quarter: 2011Q1

REPORT INFORMATION
  Report Type: 
  Country: None (occurrence: None)
  Receive Date: 20110126
  Receipt Date: 20101202
  Transmission Date: 20110831
  Serious: Yes (Other)
  Sender: FDA-Public Use
  Company Number: CN-SANOFI-AVENTIS-2010SA072877

PATIENT
  Age: 53 Year
  Sex: Male

DRUGS (6)
  1. ACETYLSALICYLIC ACID SRT [Concomitant]
     Route: 065
  2. ATORVASTATIN CALCIUM [Interacting]
     Route: 065
  3. HEPARIN [Concomitant]
     Route: 065
  4. METOPROLOL [Concomitant]
     Route: 065
  5. CLOPIDOGREL BISULFATE [Suspect]
     Route: 065
  6. ISOSORBIDE DINITRATE [Concomitant]
     Route: 065

REACTIONS (4)
  - DRUG INTERACTION [None]
  - ALANINE AMINOTRANSFERASE INCREASED [None]
  - GAMMA-GLUTAMYLTRANSFERASE INCREASED [None]
  - ASPARTATE AMINOTRANSFERASE INCREASED [None]
